FAERS Safety Report 18724349 (Version 1)
Quarter: 2021Q1

REPORT INFORMATION
  Report Type: Spontaneous
  Country: US (occurrence: US)
  Receive Date: 20210108
  Receipt Date: 20210108
  Transmission Date: 20210419
  Serious: No
  Sender: FDA-Public Use
  Company Number: None

PATIENT
  Sex: Female

DRUGS (1)
  1. MAVYRET [Suspect]
     Active Substance: GLECAPREVIR\PIBRENTASVIR
     Indication: CHRONIC HEPATITIS
     Dosage: ?          OTHER DOSE:100MG/40MG;?
     Route: 048
     Dates: start: 20201127

REACTIONS (2)
  - Feeling hot [None]
  - Hyperhidrosis [None]
